FAERS Safety Report 5234886-8 (Version None)
Quarter: 2007Q1

REPORT INFORMATION
  Report Type: 
  Country: None (occurrence: None)
  Receive Date: 20070209
  Receipt Date: 20070126
  Transmission Date: 20070707
  Serious: Yes (Other)
  Sender: FDA-Public Use
  Company Number: US-PFIZER INC-2007008416

PATIENT
  Sex: Male

DRUGS (2)
  1. NEURONTIN [Suspect]
     Indication: PAIN
  2. IBUPROFEN [Concomitant]

REACTIONS (8)
  - ABDOMINAL PAIN [None]
  - BACK PAIN [None]
  - CONSTIPATION [None]
  - COUGH [None]
  - DEPRESSION [None]
  - DYSPEPSIA [None]
  - NERVOUSNESS [None]
  - UNEVALUABLE EVENT [None]
